FAERS Safety Report 7951857-9 (Version None)
Quarter: 2011Q4

REPORT INFORMATION
  Report Type: 
  Country: None (occurrence: None)
  Receive Date: 20111201
  Receipt Date: 20111116
  Transmission Date: 20120403
  Serious: Yes (Hospitalization)
  Sender: FDA-Public Use
  Company Number: AU-WATSON-2011-19867

PATIENT
  Age: 33 Year
  Sex: Male

DRUGS (2)
  1. TESTOSTERONE CYPIONATE [Suspect]
     Indication: OFF LABEL USE
     Dosage: Q 2 WEEKS
     Route: 030
  2. SPIRONOLACTONE [Suspect]
     Indication: OFF LABEL USE
     Dosage: 100 MG, DAILY

REACTIONS (3)
  - RHABDOMYOLYSIS [None]
  - WATER INTOXICATION [None]
  - HYPERKALAEMIA [None]
